FAERS Safety Report 21160661 (Version 1)
Quarter: 2022Q3

REPORT INFORMATION
  Report Type: Spontaneous
  Country: US (occurrence: None)
  Receive Date: 20220801
  Receipt Date: 20220801
  Transmission Date: 20221027
  Serious: Yes (Life-Threatening, Hospitalization)
  Sender: FDA-Public Use
  Company Number: None

PATIENT
  Sex: Female
  Weight: 61 kg

DRUGS (1)
  1. FARXIGA [Suspect]
     Active Substance: DAPAGLIFLOZIN PROPANEDIOL
     Indication: Type 2 diabetes mellitus
     Dosage: FREQUENCY : DAILY;?
     Route: 048
     Dates: end: 20220722

REACTIONS (8)
  - Glycosylated haemoglobin increased [None]
  - Hypotension [None]
  - Shock [None]
  - Metabolic disorder [None]
  - Blood glucose increased [None]
  - Blood creatinine abnormal [None]
  - Blood bicarbonate abnormal [None]
  - Blood ketone body present [None]

NARRATIVE: CASE EVENT DATE: 20220722
